FAERS Safety Report 9317057 (Version 1)
Quarter: 2013Q2

REPORT INFORMATION
  Report Type: Spontaneous
  Country: US (occurrence: None)
  Receive Date: 20130528
  Receipt Date: 20130528
  Transmission Date: 20140414
  Serious: Yes (Life-Threatening, Hospitalization)
  Sender: FDA-Public Use
  Company Number: None

PATIENT
  Age: 51 Year
  Sex: Male
  Weight: 63.05 kg

DRUGS (2)
  1. FEIBA [Suspect]
     Indication: FACTOR VIII DEFICIENCY
     Dosage: ~6000 UNITS INTRAVENOUSLY AS NEEDED FOR BLEEDING
     Dates: start: 20120214, end: 20130214
  2. NOVOSEVEN [Concomitant]

REACTIONS (3)
  - Palpitations [None]
  - Myocardial infarction [None]
  - Product quality issue [None]
